FAERS Safety Report 5121629-1 (Version None)
Quarter: 2006Q4

REPORT INFORMATION
  Report Type: 
  Country: None (occurrence: None)
  Receive Date: 20061003
  Receipt Date: 20060920
  Transmission Date: 20070319
  Serious: Yes (Other)
  Sender: FDA-Public Use
  Company Number: 2006117462

PATIENT
  Sex: Female

DRUGS (2)
  1. DEPO-PROVERA [Suspect]
     Indication: CONTRACEPTION
  2. DEPO-MEDROL W/LIDOCAINE (LIDOCAINE HYDROCHLORIDE, METHYLPREDNISOLONE A [Suspect]
     Indication: TENOSYNOVITIS STENOSANS

REACTIONS (3)
  - HYPERSENSITIVITY [None]
  - PRURITUS [None]
  - SWELLING FACE [None]
